FAERS Safety Report 9734424 (Version 2)
Quarter: 2013Q4

REPORT INFORMATION
  Report Type: Spontaneous
  Country: US (occurrence: US)
  Receive Date: 20131206
  Receipt Date: 20131206
  Transmission Date: 20140711
  Serious: Yes (Other)
  Sender: FDA-Public Use
  Company Number: US-BEH-2013038911

PATIENT
  Sex: Female
  Weight: 90 kg

DRUGS (28)
  1. HIZENTRA [Suspect]
     Indication: IMMUNODEFICIENCY COMMON VARIABLE
     Dosage: 4 GM 20 ML VIAL; 3-4 SITES OVER 1-2 HOURS
     Route: 058
  2. HIZENTRA [Suspect]
     Dosage: 4 GM 20 ML VIAL; 3-4 SITES OVER 1-2 HOURS
     Route: 058
  3. EVISTA [Concomitant]
  4. HUMALOG [Concomitant]
  5. SINGULAIR [Concomitant]
  6. PEPCID [Concomitant]
  7. PRAVASTATIN [Concomitant]
  8. METFORMIN [Concomitant]
  9. PROMETHAZINE [Concomitant]
  10. LISINOPRIL [Concomitant]
  11. GLIPIZIDE [Concomitant]
  12. FLONASE [Concomitant]
  13. ADVAIR [Concomitant]
  14. VITAMIN D [Concomitant]
  15. POTASSIUM [Concomitant]
  16. ASPIRIN [Concomitant]
  17. ALBUTEROL [Concomitant]
  18. DIPHENHYDRAMINE [Concomitant]
  19. EPIPEN [Concomitant]
  20. FLEXERIL [Concomitant]
  21. BACTROBAN [Concomitant]
  22. LANTUS [Concomitant]
  23. CLINDAMYCIN [Concomitant]
  24. VANCOMYCIN [Concomitant]
  25. DOXYCYCLINE [Concomitant]
  26. LEVAQUIN [Concomitant]
  27. COUMADIN [Concomitant]
  28. AMBIEN [Concomitant]

REACTIONS (9)
  - Staphylococcal infection [Unknown]
  - Infusion site infection [Unknown]
  - Injection site erythema [Unknown]
  - Injection site pain [Unknown]
  - Fatigue [Unknown]
  - Pyrexia [Unknown]
  - Injection site warmth [Unknown]
  - Injection site swelling [Unknown]
  - Injection site inflammation [Unknown]
